FAERS Safety Report 10072828 (Version 2)
Quarter: 2014Q2

REPORT INFORMATION
  Report Type: Spontaneous
  Country: US (occurrence: US)
  Receive Date: 20140411
  Receipt Date: 20140421
  Transmission Date: 20141212
  Serious: Yes (Hospitalization)
  Sender: FDA-Public Use
  Company Number: US-ROCHE-1381202

PATIENT
  Age: 56 Year
  Sex: Female

DRUGS (2)
  1. XOLAIR [Suspect]
     Indication: ASTHMA
     Dosage: 350MG TOTAL IN 3 SHOTS
     Route: 058
     Dates: start: 2012
  2. EPIPEN [Concomitant]

REACTIONS (11)
  - Asthma [Not Recovered/Not Resolved]
  - Anaphylactic shock [Unknown]
  - Infection [Unknown]
  - Obstructive airways disorder [Unknown]
  - Wheezing [Unknown]
  - Dyspnoea [Unknown]
  - Pruritus [Unknown]
  - Adverse drug reaction [Recovering/Resolving]
  - Fatigue [Recovered/Resolved]
  - Nervousness [Recovered/Resolved]
  - Anxiety [Recovered/Resolved]
